FAERS Safety Report 5587318-4 (Version None)
Quarter: 2008Q1

REPORT INFORMATION
  Report Type: 
  Country: None (occurrence: None)
  Receive Date: 20080107
  Receipt Date: 20071221
  Transmission Date: 20080703
  Serious: Yes (Hospitalization, Other)
  Sender: FDA-Public Use
  Company Number: 2008US000023

PATIENT
  Age: 30 Year
  Sex: Female

DRUGS (7)
  1. AMBISOME [Suspect]
     Indication: HISTOPLASMOSIS
     Dosage: 150 MG, UID/QD; IV NOS
     Route: 042
     Dates: start: 20071031, end: 20071115
  2. TRUVADA [Suspect]
     Indication: HIV INFECTION
     Dosage: ORAL
     Route: 048
     Dates: start: 20071023, end: 20071110
  3. BACTRIM [Suspect]
     Indication: DRUG USE FOR UNKNOWN INDICATION
     Dosage: UID/QD; ORAL
     Route: 048
     Dates: start: 20071005, end: 20071119
  4. NORVIR [Concomitant]
  5. REYATAZ (AZTAZANAVIR SULFATE) [Concomitant]
  6. SPECIAFOLDINE (FOLIC ACID) [Concomitant]
  7. FLUCONAZOLE [Concomitant]

REACTIONS (5)
  - ALANINE AMINOTRANSFERASE INCREASED [None]
  - APLASIA [None]
  - IMMUNE RECONSTITUTION SYNDROME [None]
  - PANCYTOPENIA [None]
  - PYREXIA [None]
